FAERS Safety Report 13639148 (Version 1)
Quarter: 2017Q2

REPORT INFORMATION
  Report Type: Spontaneous
  Country: US (occurrence: US)
  Receive Date: 20170609
  Receipt Date: 20170609
  Transmission Date: 20170830
  Serious: Yes (Other)
  Sender: FDA-Public Use
  Company Number: US-ROCHE-1213455

PATIENT
  Age: 36 Year
  Sex: Female

DRUGS (1)
  1. KLONOPIN [Suspect]
     Active Substance: CLONAZEPAM
     Indication: PRODUCT USED FOR UNKNOWN INDICATION
     Route: 065
     Dates: start: 2010

REACTIONS (7)
  - Hallucination [Unknown]
  - Crime [Not Recovered/Not Resolved]
  - Mental disorder [Not Recovered/Not Resolved]
  - Mental disorder [Unknown]
  - Road traffic accident [Unknown]
  - Therapy cessation [Unknown]
  - Aggression [Unknown]
